FAERS Safety Report 4400737-4 (Version None)
Quarter: 2004Q3

REPORT INFORMATION
  Report Type: 
  Country: None (occurrence: None)
  Receive Date: 20040714
  Receipt Date: 20040628
  Transmission Date: 20050211
  Serious: Yes (Hospitalization)
  Sender: FDA-Public Use
  Company Number: A01200403020

PATIENT
  Age: 67 Year
  Sex: Male

DRUGS (6)
  1. XATRAL OD - (ALFUZOSIN HYDROCHLORIDE) - TABLET - 10 MG [Suspect]
     Indication: BENIGN PROSTATIC HYPERPLASIA
     Dosage: 10 MG OD, ORAL
     Route: 048
     Dates: start: 20040101, end: 20040101
  2. SIMVASTATIN [Concomitant]
  3. GLYCERYL NITRATE (GLUCERYL TRINITRATE) [Concomitant]
  4. ASPIRIN [Concomitant]
  5. VERAPAMIL [Concomitant]
  6. ISOSORBIDE-5-MONONITRATE (ISOSORBIDE MONONITRATE) [Concomitant]

REACTIONS (1)
  - ACUTE MYOCARDIAL INFARCTION [None]
